FAERS Safety Report 11918798 (Version 1)
Quarter: 2016Q1

REPORT INFORMATION
  Report Type: Spontaneous
  Country: US (occurrence: None)
  Receive Date: 20160114
  Receipt Date: 20160114
  Transmission Date: 20160526
  Serious: Yes (Life-Threatening)
  Sender: FDA-Public Use
  Company Number: None

PATIENT
  Age: 37 Year
  Sex: Female
  Weight: 135.17 kg

DRUGS (18)
  1. DIAZEPAM. [Concomitant]
     Active Substance: DIAZEPAM
  2. ATORVASTATIN [Concomitant]
     Active Substance: ATORVASTATIN
  3. GABAPENTIN. [Concomitant]
     Active Substance: GABAPENTIN
  4. LOSARTAN. [Concomitant]
     Active Substance: LOSARTAN
  5. VITAMIN D3 [Concomitant]
     Active Substance: CHOLECALCIFEROL
  6. ASPIRIN. [Concomitant]
     Active Substance: ASPIRIN
  7. DULOXETINE. [Concomitant]
     Active Substance: DULOXETINE
  8. FARXIGA [Suspect]
     Active Substance: DAPAGLIFLOZIN PROPANEDIOL
     Indication: TYPE 2 DIABETES MELLITUS
     Dosage: 1 PILL
     Route: 048
     Dates: start: 20150901, end: 20160113
  9. SPIRONOLACTONE. [Concomitant]
     Active Substance: SPIRONOLACTONE
  10. LEVTHYROXINE [Concomitant]
     Active Substance: LEVOTHYROXINE
  11. BACLOFEN. [Concomitant]
     Active Substance: BACLOFEN
  12. TRAMADOL. [Concomitant]
     Active Substance: TRAMADOL
  13. BLOOD GLUCOSE METER [Concomitant]
  14. BIOTIN [Concomitant]
     Active Substance: BIOTIN
  15. TOPIRAMATE. [Concomitant]
     Active Substance: TOPIRAMATE
  16. TIZANIDINE. [Concomitant]
     Active Substance: TIZANIDINE
  17. CYCLOBENZAPRINE [Concomitant]
     Active Substance: CYCLOBENZAPRINE
  18. FUROSEMIDE. [Concomitant]
     Active Substance: FUROSEMIDE

REACTIONS (3)
  - Condition aggravated [None]
  - Hypoglycaemia unawareness [None]
  - Blood glucose decreased [None]

NARRATIVE: CASE EVENT DATE: 20160113
